FAERS Safety Report 15887794 (Version 1)
Quarter: 2019Q1

REPORT INFORMATION
  Report Type: Spontaneous
  Country: AR (occurrence: AR)
  Receive Date: 20190130
  Receipt Date: 20190130
  Transmission Date: 20190417
  Serious: Yes (Disabling)
  Sender: FDA-Public Use
  Company Number: AR-TEVA-2019-AR-1004229

PATIENT
  Sex: Female

DRUGS (1)
  1. EMOTIVAL (LORAZEPAM) [Suspect]
     Active Substance: LORAZEPAM
     Dosage: DAILY (NOT SPECIFIED)
     Route: 048
     Dates: start: 20181217, end: 20181218

REACTIONS (5)
  - Dyspnoea [Unknown]
  - Pain in extremity [Unknown]
  - Chest pain [Unknown]
  - Mobility decreased [Unknown]
  - Hypersensitivity [Unknown]
